FAERS Safety Report 8180109-X (Version None)
Quarter: 2012Q1

REPORT INFORMATION
  Report Type: 
  Country: None (occurrence: None)
  Receive Date: 20120302
  Receipt Date: 20120302
  Transmission Date: 20120608
  Serious: Yes (Hospitalization)
  Sender: FDA-Public Use
  Company Number: None

PATIENT
  Age: 14 Year
  Sex: Male
  Weight: 49.895 kg

DRUGS (1)
  1. COLCRYS [Suspect]
     Dosage: 2 TABLET
     Route: 048
     Dates: start: 20101201, end: 20111118

REACTIONS (4)
  - ABDOMINAL PAIN UPPER [None]
  - PAIN [None]
  - RENAL PAIN [None]
  - RASH [None]
